FAERS Safety Report 5253841-5 (Version None)
Quarter: 2007Q1

REPORT INFORMATION
  Report Type: 
  Country: None (occurrence: None)
  Receive Date: 20070227
  Receipt Date: 20070215
  Transmission Date: 20070707
  Serious: Yes (Hospitalization)
  Sender: FDA-Public Use
  Company Number: 235302

PATIENT
  Age: 56 Year
  Sex: Female
  Weight: 107 kg

DRUGS (4)
  1. AVASTIN [Suspect]
     Indication: NON-SMALL CELL LUNG CANCER
     Dosage: 1635 MG, Q3W, INTRAVENOUS
     Route: 042
     Dates: start: 20061214
  2. CARBOPLATIN [Concomitant]
  3. GEMCITABINE [Concomitant]
  4. AVELOX (MOXIFLOXACIN HYDORCHLORIDE) [Concomitant]

REACTIONS (3)
  - BRONCHOPULMONARY ASPERGILLOSIS [None]
  - PLEURAL NEOPLASM [None]
  - PNEUMONIA [None]
